FAERS Safety Report 14685661 (Version 1)
Quarter: 2018Q1

REPORT INFORMATION
  Report Type: Spontaneous
  Country: JP (occurrence: JP)
  Receive Date: 20180327
  Receipt Date: 20180327
  Transmission Date: 20180509
  Serious: Yes (Other)
  Sender: FDA-Public Use
  Company Number: JP-PFIZER INC-2018116581

PATIENT

DRUGS (1)
  1. CABASER 0.25MG [Suspect]
     Active Substance: CABERGOLINE
     Dosage: 0.25 MG, WEEKLY
     Route: 048

REACTIONS (1)
  - Impaired gastric emptying [Unknown]
